FAERS Safety Report 7638539-8 (Version None)
Quarter: 2011Q3

REPORT INFORMATION
  Report Type: 
  Country: None (occurrence: None)
  Receive Date: 20110727
  Receipt Date: 20110719
  Transmission Date: 20111222
  Serious: Yes (Death, Other)
  Sender: FDA-Public Use
  Company Number: PHHY2011US34550

PATIENT
  Sex: Female
  Weight: 63.039 kg

DRUGS (1)
  1. EXJADE [Suspect]
     Indication: BREAST CANCER
     Dosage: 1500 MG, QD
     Route: 048

REACTIONS (5)
  - LIVER INJURY [None]
  - BLOOD IRON ABNORMAL [None]
  - PLATELET COUNT DECREASED [None]
  - DEATH [None]
  - MULTI-ORGAN DISORDER [None]
